FAERS Safety Report 8179279-9 (Version None)
Quarter: 2012Q1

REPORT INFORMATION
  Report Type: 
  Country: None (occurrence: None)
  Receive Date: 20120229
  Receipt Date: 20120217
  Transmission Date: 20120608
  Serious: Yes (Hospitalization)
  Sender: FDA-Public Use
  Company Number: 2012SP009306

PATIENT
  Age: 11 Year
  Sex: Female

DRUGS (1)
  1. PROVENTIL-HFA [Suspect]
     Indication: ASTHMA EXERCISE INDUCED
     Dosage: 1 DF;PRN;INH
     Route: 055
     Dates: start: 20110801

REACTIONS (1)
  - VIRAL INFECTION [None]
